FAERS Safety Report 19944232 (Version 5)
Quarter: 2022Q2

REPORT INFORMATION
  Report Type: Report from Study
  Country: ES (occurrence: ES)
  Receive Date: 20211012
  Receipt Date: 20220613
  Transmission Date: 20220721
  Serious: No
  Sender: FDA-Public Use
  Company Number: ES-HTU-2021ES023436

PATIENT

DRUGS (2)
  1. INFIGRATINIB [Suspect]
     Active Substance: INFIGRATINIB
     Indication: Osteochondrodysplasia
     Dosage: 0.064 MG/KG
     Route: 048
     Dates: start: 20210831, end: 20210909
  2. INFIGRATINIB [Suspect]
     Active Substance: INFIGRATINIB
     Dosage: 0.032 MG/KG
     Route: 048
     Dates: start: 20211014

REACTIONS (1)
  - Hyperphosphataemia [Recovered/Resolved]

NARRATIVE: CASE EVENT DATE: 20210902
